FAERS Safety Report 7927050-2 (Version None)
Quarter: 2011Q4

REPORT INFORMATION
  Report Type: 
  Country: None (occurrence: None)
  Receive Date: 20111118
  Receipt Date: 20111109
  Transmission Date: 20120403
  Serious: Yes (Life-Threatening, Hospitalization)
  Sender: FDA-Public Use
  Company Number: CA-JNJFOC-20111105062

PATIENT
  Sex: Male
  Weight: 91 kg

DRUGS (1)
  1. REMICADE [Suspect]
     Indication: ANKYLOSING SPONDYLITIS
     Route: 042
     Dates: start: 20090101, end: 20111004

REACTIONS (3)
  - PLEURAL EFFUSION [None]
  - ATRIAL FIBRILLATION [None]
  - PERICARDITIS [None]
